FAERS Safety Report 9387708 (Version 2)
Quarter: 2013Q3

REPORT INFORMATION
  Report Type: Spontaneous
  Country: DE (occurrence: None)
  Receive Date: 20130701
  Receipt Date: 20130709
  Transmission Date: 20140515
  Serious: Yes (Death)
  Sender: FDA-Public Use
  Company Number: 2013DE001824

PATIENT
  Age: 54 Year
  Sex: Male

DRUGS (1)
  1. PONATINIB [Suspect]
     Indication: BLAST CRISIS IN MYELOGENOUS LEUKAEMIA

REACTIONS (10)
  - Death [None]
  - Drug resistance [None]
  - Acute abdomen [None]
  - Dizziness [None]
  - Blood pressure decreased [None]
  - Loss of consciousness [None]
  - Localised intraabdominal fluid collection [None]
  - White blood cell count increased [None]
  - Platelet count decreased [None]
  - Blast cell count increased [None]
